FAERS Safety Report 19902691 (Version 1)
Quarter: 2021Q3

REPORT INFORMATION
  Report Type: Spontaneous
  Country: CA (occurrence: CA)
  Receive Date: 20210930
  Receipt Date: 20210930
  Transmission Date: 20211014
  Serious: Yes (Life-Threatening, Hospitalization)
  Sender: FDA-Public Use
  Company Number: CA-TEVA-2021-CA-1959101

PATIENT
  Age: 60 Year
  Sex: Male
  Weight: 120 kg

DRUGS (9)
  1. DEXILANT [Concomitant]
     Active Substance: DEXLANSOPRAZOLE
  2. SALBUTAMOL [Concomitant]
     Active Substance: ALBUTEROL
  3. BETAHISTINE [Concomitant]
     Active Substance: BETAHISTINE
  4. EZETIMIBE. [Concomitant]
     Active Substance: EZETIMIBE
  5. FLUTICASONE. [Concomitant]
     Active Substance: FLUTICASONE
  6. NAPROXEN EC [Concomitant]
     Active Substance: NAPROXEN
  7. HYDROMORPHONE [Concomitant]
     Active Substance: HYDROMORPHONE
  8. PRAVASTATIN SODIUM. [Concomitant]
     Active Substance: PRAVASTATIN SODIUM
  9. LEVOFLOXACIN. [Suspect]
     Active Substance: LEVOFLOXACIN
     Indication: BRONCHITIS
     Dosage: 500 MILLIGRAM DAILY;
     Route: 048

REACTIONS (6)
  - Anaphylactic reaction [Recovered/Resolved]
  - Chest discomfort [Recovered/Resolved]
  - Intensive care [Recovered/Resolved]
  - Altered state of consciousness [Recovered/Resolved]
  - Oedema [Recovered/Resolved]
  - Rash [Recovered/Resolved]
